FAERS Safety Report 9766108 (Version 1)
Quarter: 2013Q4

REPORT INFORMATION
  Report Type: Spontaneous
  Country: GB (occurrence: GB)
  Receive Date: 20131217
  Receipt Date: 20131217
  Transmission Date: 20140711
  Serious: Yes (Other)
  Sender: FDA-Public Use
  Company Number: GB-ABBVIE-13P-167-1179578-00

PATIENT
  Age: 12 Year
  Sex: Female

DRUGS (1)
  1. EPILIM [Suspect]
     Indication: EPILEPSY
     Dosage: TWICE DAILY
     Route: 048
     Dates: start: 201302, end: 201310

REACTIONS (3)
  - Dysarthria [Recovering/Resolving]
  - Ataxia [Recovering/Resolving]
  - Tremor [Recovering/Resolving]
